FAERS Safety Report 10395861 (Version 2)
Quarter: 2015Q4

REPORT INFORMATION
  Report Type: Spontaneous
  Country: FR (occurrence: FR)
  Receive Date: 20140820
  Receipt Date: 20151221
  Transmission Date: 20160304
  Serious: Yes (Other)
  Sender: FDA-Public Use
  Company Number: FR-JNJFOC-20140813086

PATIENT

DRUGS (3)
  1. PREDNISOLONE. [Concomitant]
     Active Substance: PREDNISOLONE
     Indication: UVEITIS
     Route: 065
  2. INFLIXIMAB, RECOMBINANT [Suspect]
     Active Substance: INFLIXIMAB
     Indication: UVEITIS
     Route: 042
  3. INFLIXIMAB, RECOMBINANT [Suspect]
     Active Substance: INFLIXIMAB
     Indication: UVEITIS
     Dosage: AT WEEK 0,2,6 AND EVERY 6 WEEKS
     Route: 042

REACTIONS (7)
  - Therapeutic response unexpected [Unknown]
  - Infection [Unknown]
  - Off label use [Unknown]
  - Drug effect incomplete [Unknown]
  - Product use issue [Unknown]
  - Adverse drug reaction [Unknown]
  - Hypersensitivity [Unknown]
